FAERS Safety Report 7716005-9 (Version None)
Quarter: 2011Q3

REPORT INFORMATION
  Report Type: 
  Country: None (occurrence: None)
  Receive Date: 20110829
  Receipt Date: 20110822
  Transmission Date: 20111222
  Serious: Yes (Other)
  Sender: FDA-Public Use
  Company Number: GB-TEVA-297856ISR

PATIENT
  Age: 16 Year
  Sex: Male

DRUGS (4)
  1. RISPERIDONE [Suspect]
     Indication: PRODUCT USED FOR UNKNOWN INDICATION
     Route: 048
  2. CONCERTA [Suspect]
     Route: 048
  3. VALPROATE SODIUM [Concomitant]
  4. CONCERTA [Suspect]
     Indication: ATTENTION DEFICIT/HYPERACTIVITY DISORDER
     Route: 048

REACTIONS (4)
  - TACHYCARDIA [None]
  - INSOMNIA [None]
  - ATTENTION DEFICIT/HYPERACTIVITY DISORDER [None]
  - WEIGHT DECREASED [None]
